FAERS Safety Report 19172572 (Version 1)
Quarter: 2021Q2

REPORT INFORMATION
  Report Type: Spontaneous
  Country: US (occurrence: US)
  Receive Date: 20210422
  Receipt Date: 20210422
  Transmission Date: 20210717
  Serious: No
  Sender: FDA-Public Use
  Company Number: None

PATIENT
  Sex: Female

DRUGS (7)
  1. ETODOLAC. [Concomitant]
     Active Substance: ETODOLAC
  2. DOXYCYCL HYC [Concomitant]
  3. LEXAPRO [Concomitant]
     Active Substance: ESCITALOPRAM OXALATE
  4. AJOVY [Concomitant]
     Active Substance: FREMANEZUMAB-VFRM
  5. AMOX/K CLAV [Concomitant]
     Active Substance: AMOXICILLIN\CLAVULANATE POTASSIUM
  6. HUMIRA [Suspect]
     Active Substance: ADALIMUMAB
     Indication: PSORIATIC ARTHROPATHY
     Dosage: DOSE OR AMOUNT: 1 PEN
     Route: 058
     Dates: start: 20200924
  7. BROM/PSE/DM [Concomitant]

REACTIONS (2)
  - Surgery [None]
  - Therapy interrupted [None]
